FAERS Safety Report 18983741 (Version 1)
Quarter: 2021Q1

REPORT INFORMATION
  Report Type: Spontaneous
  Country: US (occurrence: US)
  Receive Date: 20210309
  Receipt Date: 20210309
  Transmission Date: 20210420
  Serious: Yes (Hospitalization)
  Sender: FDA-Public Use
  Company Number: US-TEVA-2021-US-1887188

PATIENT
  Sex: Male

DRUGS (2)
  1. LISINOPRIL AND HYDROCHLOROTHIAZIDE TEVA [Suspect]
     Active Substance: HYDROCHLOROTHIAZIDE\LISINOPRIL
     Route: 065
  2. LOSARTAN AUROBINDO [Concomitant]
     Active Substance: LOSARTAN
     Route: 065

REACTIONS (4)
  - Near death experience [Recovered/Resolved]
  - Hypersensitivity [Recovered/Resolved]
  - Swelling [Recovered/Resolved]
  - Urticaria [Recovered/Resolved]
